FAERS Safety Report 20749074 (Version 2)
Quarter: 2022Q3

REPORT INFORMATION
  Report Type: Spontaneous
  Country: US (occurrence: US)
  Receive Date: 20220426
  Receipt Date: 20220812
  Transmission Date: 20221027
  Serious: Yes (Hospitalization, Other)
  Sender: FDA-Public Use
  Company Number: US-IPCA LABORATORIES LIMITED-IPC-2022-US-000504

PATIENT

DRUGS (3)
  1. WARFARIN [Suspect]
     Active Substance: WARFARIN
     Indication: Atrial fibrillation
     Dosage: UNK
     Route: 065
  2. ASPIRIN [Concomitant]
     Active Substance: ASPIRIN
     Indication: Atrial fibrillation
     Dosage: 81 MILLIGRAM, QD
     Route: 065
  3. ENOXAPARIN [Concomitant]
     Active Substance: ENOXAPARIN
     Indication: Product used for unknown indication
     Dosage: UNK
     Route: 065

REACTIONS (15)
  - Ocular retrobulbar haemorrhage [Unknown]
  - Headache [Unknown]
  - Exophthalmos [Unknown]
  - Visual impairment [Unknown]
  - Diplopia [Unknown]
  - Extraocular muscle disorder [Unknown]
  - Optic neuropathy [Unknown]
  - Dyschromatopsia [Unknown]
  - Ecchymosis [Unknown]
  - Oedema [Unknown]
  - Eye haematoma [Unknown]
  - Sinusitis [Unknown]
  - Epistaxis [Unknown]
  - Strabismus [Unknown]
  - Vitamin C deficiency [Unknown]
